FAERS Safety Report 7487954-4 (Version None)
Quarter: 2011Q2

REPORT INFORMATION
  Report Type: 
  Country: None (occurrence: None)
  Receive Date: 20110518
  Receipt Date: 20110509
  Transmission Date: 20111010
  Serious: Yes (Hospitalization)
  Sender: FDA-Public Use
  Company Number: US-AMGEN-USACT2011024225

PATIENT
  Age: 65 Year
  Sex: Female

DRUGS (24)
  1. PEGFILGRASTIM [Suspect]
     Indication: SMALL CELL CARCINOMA
     Dosage: UNK
     Dates: start: 20110226
  2. REGLAN [Concomitant]
     Dosage: 10 MG, UNK
     Route: 048
     Dates: start: 20110225
  3. WELLBUTRIN [Concomitant]
     Dosage: 100 MG, UNK
     Route: 048
     Dates: start: 20110314
  4. PROTONIX [Concomitant]
     Dosage: 40 MG, UNK
     Route: 042
     Dates: start: 20110314
  5. LOPID [Concomitant]
     Dosage: 600 MG, UNK
     Dates: start: 20101001
  6. FENTANYL [Concomitant]
     Dosage: 75 MG, UNK
     Dates: start: 20110314, end: 20110318
  7. GRANISETRON HCL [Concomitant]
     Dosage: UNK
     Dates: start: 20110223
  8. NORCO [Concomitant]
     Dosage: UNK
     Route: 048
     Dates: start: 20080201
  9. MEGACE [Concomitant]
     Dosage: 20 MG, UNK
     Route: 048
     Dates: start: 20110101
  10. COMPAZINE [Concomitant]
     Dosage: 10 MG, UNK
     Route: 048
     Dates: start: 20110303
  11. LOVASTATIN [Concomitant]
     Dosage: 20 MG, UNK
     Route: 048
     Dates: start: 20101001
  12. ZOFRAN [Concomitant]
     Dosage: UNK
     Route: 048
     Dates: start: 20110214
  13. COLACE [Concomitant]
     Dosage: 200 MG, UNK
     Route: 048
     Dates: start: 20110314
  14. LIDOCAINE [Concomitant]
     Dosage: UNK
     Dates: start: 20100314
  15. MOXIFLOXACIN [Concomitant]
     Dosage: 400 MG, UNK
     Route: 048
     Dates: end: 20110325
  16. CELEXA [Concomitant]
     Dosage: 20 MG, UNK
     Dates: start: 20090201
  17. ALENDRONATE SODIUM [Concomitant]
     Dosage: 10 MG, UNK
  18. SOMA [Concomitant]
     Dosage: 350 MG, UNK
     Route: 048
     Dates: start: 20100801
  19. PRILOSEC [Concomitant]
     Dosage: 20 MG, UNK
     Dates: start: 20060201
  20. AMRUBICIN [Concomitant]
     Indication: SMALL CELL CARCINOMA
     Dosage: UNK
     Route: 042
     Dates: start: 20110223
  21. CARBOPLATIN [Concomitant]
     Indication: SMALL CELL CARCINOMA
     Dosage: UNK
     Dates: start: 20110223
  22. HYDROCODONE BITARTRATE [Concomitant]
     Dosage: 1.5 MG, UNK
     Route: 042
     Dates: start: 20110314
  23. ATIVAN [Concomitant]
     Dosage: 1 MG, UNK
     Route: 048
     Dates: start: 20110101
  24. MORPHINE [Concomitant]
     Dosage: UNK
     Route: 042
     Dates: start: 20110101

REACTIONS (5)
  - PNEUMONIA [None]
  - NEUTROPENIA [None]
  - VOMITING [None]
  - NAUSEA [None]
  - PANCYTOPENIA [None]
